FAERS Safety Report 9896442 (Version 2)
Quarter: 2014Q1

REPORT INFORMATION
  Report Type: Spontaneous
  Country: US (occurrence: US)
  Receive Date: 20140213
  Receipt Date: 20140213
  Transmission Date: 20141002
  Serious: Yes (Other)
  Sender: FDA-Public Use
  Company Number: US-GE HEALTHCARE MEDICAL DIAGNOSTICS-OSCN-PR-0805S-0275

PATIENT
  Age: 46 Year
  Sex: Male

DRUGS (5)
  1. OMNISCAN [Suspect]
     Indication: TUBULOINTERSTITIAL NEPHRITIS
     Route: 042
     Dates: start: 20041227, end: 20041227
  2. OMNISCAN [Suspect]
     Indication: HAEMATURIA
     Route: 042
     Dates: start: 20041228, end: 20041228
  3. OMNISCAN [Suspect]
     Indication: DIABETES MELLITUS
     Route: 042
     Dates: start: 20050326, end: 20050326
  4. OMNISCAN [Suspect]
     Indication: LOCAL SWELLING
     Route: 042
     Dates: start: 20051128, end: 20051128
  5. OMNISCAN [Suspect]
     Indication: VASCULAR GRAFT COMPLICATION

REACTIONS (1)
  - Nephrogenic systemic fibrosis [Not Recovered/Not Resolved]
